FAERS Safety Report 6166404-4 (Version None)
Quarter: 2009Q2

REPORT INFORMATION
  Report Type: 
  Country: None (occurrence: None)
  Receive Date: 20090424
  Receipt Date: 20090324
  Transmission Date: 20091009
  Serious: No
  Sender: FDA-Public Use
  Company Number: US-BAYER-200913285NA

PATIENT
  Age: 28 Year
  Sex: Female

DRUGS (2)
  1. MIRENA [Suspect]
     Indication: DRUG USE FOR UNKNOWN INDICATION
     Dosage: CONTINUOUS
     Route: 015
     Dates: start: 20090205
  2. PARAGARD T 380A [Suspect]
     Indication: DRUG USE FOR UNKNOWN INDICATION
     Dates: start: 20090205

REACTIONS (3)
  - GENITAL HAEMORRHAGE [None]
  - MENSTRUAL DISORDER [None]
  - SUPPRESSED LACTATION [None]
